FAERS Safety Report 6900300-7 (Version None)
Quarter: 2010Q3

REPORT INFORMATION
  Report Type: 
  Country: None (occurrence: None)
  Receive Date: 20100803
  Receipt Date: 20100719
  Transmission Date: 20110219
  Serious: Yes (Other)
  Sender: FDA-Public Use
  Company Number: PHHY2010BR47347

PATIENT
  Sex: Male
  Weight: 90 kg

DRUGS (5)
  1. HYDERGINE [Suspect]
     Indication: MEMORY IMPAIRMENT
     Dosage: 6 MG, QOD
  2. HYDERGINE [Suspect]
     Dosage: 1 CAPSULE (6 MG) EVERY OTHER DAY
     Dates: start: 20050101
  3. PRAMIPEXOLE DIHYDROCHLORIDE [Concomitant]
     Indication: RESTLESS LEGS SYNDROME
     Dosage: 103.5 MG
     Dates: start: 20080101
  4. GLUCOSAMINE SULFATE W/CHONDROITIN SULFATE [Concomitant]
     Indication: CHONDROPLASTY
     Dosage: 1.2 MG, QD
  5. GLUCOSAMINE SULFATE W/CHONDROITIN SULFATE [Concomitant]
     Dosage: 1.5 MG, QD

REACTIONS (11)
  - APATHY [None]
  - CONFUSIONAL STATE [None]
  - DAYDREAMING [None]
  - DECREASED INTEREST [None]
  - DISORIENTATION [None]
  - DRUG DEPENDENCE [None]
  - DRUG DOSE OMISSION [None]
  - FEAR OF CROWDED PLACES [None]
  - IRRITABILITY [None]
  - MEMORY IMPAIRMENT [None]
  - READING DISORDER [None]
